FAERS Safety Report 9345400 (Version 2)
Quarter: 2013Q2

REPORT INFORMATION
  Report Type: Report from Study
  Country: CA (occurrence: CA)
  Receive Date: 20130613
  Receipt Date: 20130628
  Transmission Date: 20140414
  Serious: Yes (Death)
  Sender: FDA-Public Use
  Company Number: CA-ROCHE-1231790

PATIENT
  Sex: Male

DRUGS (4)
  1. ZELBORAF [Suspect]
     Indication: PROSTATE CANCER METASTATIC
     Route: 048
     Dates: start: 20130510, end: 20130528
  2. DILAUDID [Concomitant]
  3. PREDNISONE [Concomitant]
     Dosage: AS REQUIRED
     Route: 065
  4. TYLENOL EXTRA STRENGTH [Concomitant]
     Dosage: AS REQUIRED
     Route: 065

REACTIONS (2)
  - Disease progression [Fatal]
  - Malaise [Unknown]
